FAERS Safety Report 4381721-6 (Version None)
Quarter: 2004Q2

REPORT INFORMATION
  Report Type: 
  Country: None (occurrence: None)
  Receive Date: 20040621
  Receipt Date: 20040617
  Transmission Date: 20050107
  Serious: Yes (Death)
  Sender: FDA-Public Use
  Company Number: DE-BRISTOL-MYERS SQUIBB COMPANY-12618609

PATIENT
  Age: 58 Year
  Sex: Female

DRUGS (2)
  1. CETUXIMAB [Suspect]
     Indication: COLORECTAL CANCER METASTATIC
     Dosage: PT RECEIVED ONLY THE FIRST INFUSION AT 1040 HOUR.
     Route: 042
     Dates: start: 20040616, end: 20040616
  2. IRINOTECAN [Suspect]
     Indication: COLORECTAL CANCER METASTATIC
     Dosage: PT RECEIVED ONLY THE FIRST INFUSION
     Route: 042
     Dates: start: 20040616, end: 20040616

REACTIONS (1)
  - RESPIRATORY FAILURE [None]
